FAERS Safety Report 21563868 (Version 3)
Quarter: 2022Q4

REPORT INFORMATION
  Report Type: Spontaneous
  Country: US (occurrence: US)
  Receive Date: 20221108
  Receipt Date: 20221129
  Transmission Date: 20230112
  Serious: No
  Sender: FDA-Public Use
  Company Number: US-BRISTOL-MYERS SQUIBB COMPANY-2022-133968

PATIENT
  Age: 36 Year
  Sex: Female

DRUGS (2)
  1. ORENCIA [Suspect]
     Active Substance: ABATACEPT
     Indication: Rheumatoid arthritis
     Route: 058
     Dates: start: 20221014
  2. ORENCIA [Suspect]
     Active Substance: ABATACEPT
     Indication: Behcet^s syndrome
     Route: 058
     Dates: start: 20221003, end: 20221104

REACTIONS (3)
  - Abdominal discomfort [Unknown]
  - Diarrhoea [Recovered/Resolved]
  - Bowel movement irregularity [Unknown]
